FAERS Safety Report 8539226-4 (Version None)
Quarter: 2012Q3

REPORT INFORMATION
  Report Type: 
  Country: None (occurrence: None)
  Receive Date: 20120726
  Receipt Date: 20120723
  Transmission Date: 20120928
  Serious: Yes (Death)
  Sender: FDA-Public Use
  Company Number: BR-PFIZER INC-2012177638

PATIENT
  Age: 46 Year
  Sex: Male

DRUGS (2)
  1. MORPHINE [Concomitant]
     Dosage: 30 MG, EVERY 6 HOURS
  2. SUTENT [Suspect]
     Indication: RENAL CELL CARCINOMA
     Dosage: 50 MG (CYCLE 4 TO 2)
     Route: 048
     Dates: start: 20120602

REACTIONS (1)
  - DEATH [None]
